FAERS Safety Report 9108254 (Version 2)
Quarter: 2015Q1

REPORT INFORMATION
  Report Type: Report from Study
  Country: JP (occurrence: JP)
  Receive Date: 20130222
  Receipt Date: 20150121
  Transmission Date: 20150721
  Serious: Yes (Hospitalization)
  Sender: FDA-Public Use
  Company Number: JP-009507513-1302JPN007488

PATIENT
  Age: 70 Year
  Sex: Female

DRUGS (18)
  1. DIAZOXIDE CAPSULES 25 MG ^MSD^ [Suspect]
     Active Substance: DIAZOXIDE
     Dosage: 25 MG, BID
     Route: 048
     Dates: start: 20110312, end: 20110413
  2. GEMZAR [Concomitant]
     Active Substance: GEMCITABINE HYDROCHLORIDE
     Dosage: 400 MG DAILY, DIVIDED DOSES
     Route: 042
     Dates: end: 20110222
  3. GEMZAR [Concomitant]
     Active Substance: GEMCITABINE HYDROCHLORIDE
     Dosage: 400 MG DAILY, DIVIDED DOSES
     Route: 042
     Dates: start: 20110308, end: 20110308
  4. DIAZOXIDE CAPSULES 25 MG ^MSD^ [Suspect]
     Active Substance: DIAZOXIDE
     Dosage: 25 MG, QID
     Route: 048
     Dates: start: 20130207
  5. DIAZOXIDE CAPSULES 25 MG ^MSD^ [Suspect]
     Active Substance: DIAZOXIDE
     Dosage: 50 MG, BID
     Route: 048
     Dates: start: 20110218, end: 20110218
  6. DIAZOXIDE CAPSULES 25 MG ^MSD^ [Suspect]
     Active Substance: DIAZOXIDE
     Dosage: 25 MG, TID
     Route: 048
     Dates: start: 20110502, end: 20110504
  7. NOZLEN [Concomitant]
     Indication: STOMATITIS
     Dosage: UNK, PRN
     Route: 049
     Dates: start: 20080818
  8. GEMZAR [Concomitant]
     Active Substance: GEMCITABINE HYDROCHLORIDE
     Dosage: 400 MG DAILY, DIVIDED DOSES
     Route: 042
     Dates: start: 20110322, end: 20110322
  9. DIAZOXIDE CAPSULES 25 MG ^MSD^ [Suspect]
     Active Substance: DIAZOXIDE
     Indication: HYPOGLYCAEMIA
     Dosage: 50 MG, TID
     Route: 048
     Dates: start: 20110216, end: 20110217
  10. DIAZOXIDE CAPSULES 25 MG ^MSD^ [Suspect]
     Active Substance: DIAZOXIDE
     Dosage: 25 MG, TID
     Route: 048
     Dates: start: 20110414, end: 20110430
  11. NOZLEN [Concomitant]
     Dosage: UNK
     Route: 049
     Dates: start: 20110216
  12. DIAZOXIDE CAPSULES 25 MG ^MSD^ [Suspect]
     Active Substance: DIAZOXIDE
     Dosage: 25 MG, QD
     Route: 048
     Dates: start: 20110228, end: 20110311
  13. DIAZOXIDE CAPSULES 25 MG ^MSD^ [Suspect]
     Active Substance: DIAZOXIDE
     Dosage: 25 MG, BID
     Route: 048
     Dates: start: 20110505, end: 20110815
  14. GEMZAR [Concomitant]
     Active Substance: GEMCITABINE HYDROCHLORIDE
     Indication: METASTASES TO LIVER
     Dosage: 400 MG DAILY, DIVIDED DOSES
     Route: 042
     Dates: end: 20110215
  15. DIAZOXIDE CAPSULES 25 MG ^MSD^ [Suspect]
     Active Substance: DIAZOXIDE
     Dosage: 25 MG, TID
     Route: 048
     Dates: start: 20110816, end: 20130206
  16. INTEBAN [Concomitant]
     Active Substance: INDOMETHACIN
     Dosage: PROPER DOSE
     Route: 061
     Dates: start: 2006, end: 20110215
  17. GEMZAR [Concomitant]
     Active Substance: GEMCITABINE HYDROCHLORIDE
     Dosage: 400 MG DAILY, DIVIDED DOSES
     Route: 042
     Dates: start: 20110405, end: 20110405
  18. PROMAC (POLAPREZINC) [Concomitant]
     Active Substance: POLAPREZINC
     Indication: BLOOD ZINC DECREASED
     Dosage: 150 MG, DAILY
     Route: 048
     Dates: start: 20120824

REACTIONS (17)
  - Hyperglycaemia [Recovering/Resolving]
  - Hyperglycaemia [Recovering/Resolving]
  - Abdominal pain upper [Recovering/Resolving]
  - Gastrooesophageal reflux disease [Recovering/Resolving]
  - Decreased appetite [Recovered/Resolved]
  - Haemorrhage subcutaneous [Recovering/Resolving]
  - Cancer pain [Recovering/Resolving]
  - Pruritus [Recovered/Resolved]
  - Constipation [Recovered/Resolved]
  - Pollakiuria [Recovered/Resolved]
  - Blood zinc decreased [Not Recovered/Not Resolved]
  - Hepatic enzyme increased [Not Recovered/Not Resolved]
  - Nausea [Recovered/Resolved]
  - Anxiety disorder [Recovering/Resolving]
  - Oedema [Recovered/Resolved]
  - Oedema [Recovering/Resolving]
  - Dyspepsia [Recovered/Resolved]

NARRATIVE: CASE EVENT DATE: 20110216
